FAERS Safety Report 9027761 (Version 4)
Quarter: 2013Q4

REPORT INFORMATION
  Report Type: Report from Study
  Country: JP (occurrence: JP)
  Receive Date: 20130123
  Receipt Date: 20131230
  Transmission Date: 20140711
  Serious: Yes (Death, Hospitalization)
  Sender: FDA-Public Use
  Company Number: JP-B.I. PHARMACEUTICALS,INC./RIDGEFIELD-2013-BI-01247NB

PATIENT
  Age: 77 Year
  Sex: Male
  Weight: 56 kg

DRUGS (10)
  1. MIRAPEX LA [Suspect]
     Indication: PARKINSON^S DISEASE
     Dosage: 0.375 MG
     Route: 048
     Dates: start: 20121123, end: 20121128
  2. MIRAPEX LA [Suspect]
     Dosage: 0.75 MG
     Route: 048
     Dates: start: 20121129, end: 20121206
  3. MIRAPEX LA [Suspect]
     Dosage: 1.5 MG
     Route: 048
     Dates: start: 20121207, end: 20121221
  4. MIRAPEX LA [Suspect]
     Dosage: 1.875 MG
     Route: 048
     Dates: start: 20121222, end: 20130819
  5. MADOPAR / LEVODOPA BENSERAZIDE HYDROCHLORIDE [Concomitant]
     Indication: PARKINSON^S DISEASE
     Dosage: 250 MG
     Route: 048
     Dates: end: 20130820
  6. ARTANE / TRIHEXYPHENIDYL HYDROCHLORIDE [Concomitant]
     Indication: PARKINSON^S DISEASE
     Dosage: 5 MG
     Route: 048
     Dates: end: 20130820
  7. METHYLCOBAL / MECOBALAMINE [Concomitant]
     Dosage: 1000 MCG
     Route: 048
     Dates: end: 20130820
  8. NEURONTIN / AN EXTRACT OBT AINED FROM INFLAMMOTRY RABBIT SKIN INOCULA [Concomitant]
     Dosage: 2 ANZ
     Route: 048
     Dates: end: 20130820
  9. ALMAR / AROTINOLOL HYDROCHLORIDE [Concomitant]
     Dosage: 10 MG
     Route: 048
     Dates: end: 20130820
  10. OMEPRAZON / OMEPRAZOLE [Concomitant]
     Dosage: 10 MG
     Route: 048
     Dates: end: 20130820

REACTIONS (9)
  - Pneumonia [Fatal]
  - Fall [Unknown]
  - Femoral neck fracture [Recovered/Resolved]
  - Delirium [Not Recovered/Not Resolved]
  - Dementia [Not Recovered/Not Resolved]
  - Haematocrit decreased [Not Recovered/Not Resolved]
  - Blood creatine phosphokinase increased [Not Recovered/Not Resolved]
  - Blood chloride decreased [Not Recovered/Not Resolved]
  - Blood sodium decreased [Not Recovered/Not Resolved]
